FAERS Safety Report 25106355 (Version 1)
Quarter: 2025Q1

REPORT INFORMATION
  Report Type: Spontaneous
  Country: US (occurrence: None)
  Receive Date: 20250320
  Receipt Date: 20250320
  Transmission Date: 20250408
  Serious: Yes (Hospitalization)
  Sender: FDA-CTU
  Company Number: None

PATIENT
  Age: 62 Year
  Sex: Male

DRUGS (1)
  1. NALTREXONE [Suspect]
     Active Substance: NALTREXONE
     Indication: Schizoaffective disorder
     Route: 030
     Dates: start: 20241029

REACTIONS (2)
  - Skin necrosis [None]
  - Skin ulcer [None]

NARRATIVE: CASE EVENT DATE: 20250306
